FAERS Safety Report 24005219 (Version 1)
Quarter: 2024Q2

REPORT INFORMATION
  Report Type: Spontaneous
  Country: US (occurrence: US)
  Receive Date: 20240624
  Receipt Date: 20240624
  Transmission Date: 20240716
  Serious: Yes (Other)
  Sender: FDA-Public Use
  Company Number: US-JNJFOC-20240645019

PATIENT

DRUGS (1)
  1. EUCALYPTOL\MENTHOL\METHYL SALICYLATE\THYMOL\ZINC CHLORIDE [Suspect]
     Active Substance: EUCALYPTOL\MENTHOL\METHYL SALICYLATE\THYMOL\ZINC CHLORIDE
     Indication: Product used for unknown indication
     Route: 048

REACTIONS (1)
  - Drug abuse [Unknown]
